FAERS Safety Report 25956607 (Version 1)
Quarter: 2025Q4

REPORT INFORMATION
  Report Type: Spontaneous
  Country: CA (occurrence: CA)
  Receive Date: 20251024
  Receipt Date: 20251024
  Transmission Date: 20260118
  Serious: Yes (Other)
  Sender: TEVA
  Company Number: CA-TEVA-VS-3385056

PATIENT

DRUGS (9)
  1. IRINOTECAN HYDROCHLORIDE [Suspect]
     Active Substance: IRINOTECAN HYDROCHLORIDE
     Indication: Polypoidal choroidal vasculopathy
     Dosage: DOSE FORM: SOLUTION INTRAVENOUS
     Route: 031
  2. LUCENTIS [Suspect]
     Active Substance: RANIBIZUMAB
     Indication: Polypoidal choroidal vasculopathy
     Dosage: DOSE FORM: SOLUTION INTRAVITREAL
     Route: 031
  3. LUCENTIS [Suspect]
     Active Substance: RANIBIZUMAB
     Indication: Polypoidal choroidal vasculopathy
     Route: 031
  4. LEUCOVORIN CALCIUM [Suspect]
     Active Substance: LEUCOVORIN CALCIUM
     Indication: Polypoidal choroidal vasculopathy
     Route: 031
  5. FLUOROURACIL [Suspect]
     Active Substance: FLUOROURACIL
     Indication: Polypoidal choroidal vasculopathy
     Dosage: DOSE FORM: NOT SPECIFIED
     Route: 031
  6. BEVACIZUMAB [Suspect]
     Active Substance: BEVACIZUMAB
     Indication: Polypoidal choroidal vasculopathy
     Route: 031
  7. BROLUCIZUMAB [Suspect]
     Active Substance: BROLUCIZUMAB
     Indication: Polypoidal choroidal vasculopathy
     Route: 031
  8. BEOVU [Concomitant]
     Active Substance: BROLUCIZUMAB-DBLL
     Indication: Product used for unknown indication
  9. AFLIBERCEPT [Suspect]
     Active Substance: AFLIBERCEPT
     Indication: Polypoidal choroidal vasculopathy
     Route: 031

REACTIONS (3)
  - Product use issue [Unknown]
  - Subretinal fluid [Unknown]
  - Off label use [Unknown]
